FAERS Safety Report 5466934-4 (Version None)
Quarter: 2007Q3

REPORT INFORMATION
  Report Type: 
  Country: None (occurrence: None)
  Receive Date: 20070921
  Receipt Date: 20070921
  Transmission Date: 20080115
  Serious: Yes (Life-Threatening)
  Sender: FDA-Public Use
  Company Number: None

PATIENT
  Age: 32 Year
  Sex: Female
  Weight: 70.3075 kg

DRUGS (1)
  1. ONDANSETRON 4 MG IN 2 ML SANDOZ [Suspect]
     Indication: PROPHYLAXIS OF NAUSEA AND VOMITING
     Dosage: 2MG  ONCE  IV BOLUS
     Route: 040
     Dates: start: 20070917, end: 20070917

REACTIONS (1)
  - ATRIOVENTRICULAR BLOCK SECOND DEGREE [None]
